FAERS Safety Report 25541745 (Version 2)
Quarter: 2025Q4

REPORT INFORMATION
  Report Type: Spontaneous
  Country: EG (occurrence: EG)
  Receive Date: 20250711
  Receipt Date: 20251001
  Transmission Date: 20260117
  Serious: Yes (Hospitalization, Other)
  Sender: NOVO NORDISK
  Company Number: EG-NOVOPROD-1471642

PATIENT
  Sex: Male
  Weight: 86 kg

DRUGS (10)
  1. INSULIN HUMAN [Suspect]
     Active Substance: INSULIN HUMAN
     Indication: Type 2 diabetes mellitus
     Dosage: 40 IU, QD (25U AT MORNING AND 15U AT NIGHT)
     Route: 058
  2. OLMESARTAN MEDOXOMIL [Concomitant]
     Active Substance: OLMESARTAN MEDOXOMIL
     Indication: Hypertension
     Dosage: 1 TAB/ ON AN EMPTY STOMACH
  3. AMLOSAZIDE [Concomitant]
     Indication: Hypertension
     Dosage: 2 TABS/DAY ON AN EMPTY STOMACH,  5/12.5/20 MG
  4. OMIZ [Concomitant]
     Indication: Gastrointestinal disorder
     Dosage: 1 CAPSULE/DAY ON AN EMPTY STOMACH, 40 MG
  5. ASPIRIN [Concomitant]
     Active Substance: ASPIRIN
     Indication: Haemophilia
     Dosage: (WAS 2 TABS THEN BECAME 1 TAB/DAY)
  6. ASPIRIN [Concomitant]
     Active Substance: ASPIRIN
     Indication: Haemophilia
     Dosage: 1 TAB/DAY 100 MG
  7. TAMSULOSIN HYDROCHLORIDE [Concomitant]
     Active Substance: TAMSULOSIN HYDROCHLORIDE
     Indication: Prostatic disorder
     Dosage: 1 TAB/AT NIGHT
  8. BENGIRIDE [Concomitant]
     Indication: Prostatic disorder
     Dosage: 1 TAB / NOON
  9. NITROGLYCERIN [Concomitant]
     Active Substance: NITROGLYCERIN
     Indication: Heart rate irregular
     Dosage: 1 TAB / MORNING AND 1 TAB/NIGHT
  10. BENFOTIAMINE\CYANOCOBALAMIN\PYRIDOXINE HYDROCHLORIDE [Concomitant]
     Active Substance: BENFOTIAMINE\CYANOCOBALAMIN\PYRIDOXINE HYDROCHLORIDE
     Indication: Nervous system disorder
     Dosage: 1 TAB /DAY

REACTIONS (11)
  - Arterial occlusive disease [Unknown]
  - Arterial catheterisation [Unknown]
  - Arterial angioplasty [Unknown]
  - Cataract operation [Unknown]
  - Joint arthroplasty [Unknown]
  - Gastrooesophageal reflux disease [Unknown]
  - Prostatomegaly [Unknown]
  - Hypercalcaemia [Unknown]
  - Hypotension [Unknown]
  - Injection site pain [Unknown]
  - Wrong technique in product usage process [Unknown]

NARRATIVE: CASE EVENT DATE: 20230101
